FAERS Safety Report 4318509-8 (Version None)
Quarter: 2004Q1

REPORT INFORMATION
  Report Type: 
  Country: None (occurrence: None)
  Receive Date: 20040318
  Receipt Date: 20040310
  Transmission Date: 20041129
  Serious: Yes (Hospitalization)
  Sender: FDA-Public Use
  Company Number: 200410973FR

PATIENT
  Age: 72 Year
  Sex: Male

DRUGS (11)
  1. CLAFORAN [Suspect]
     Route: 042
     Dates: start: 20040128, end: 20040201
  2. FOSFOCINE [Suspect]
     Route: 042
     Dates: start: 20040128, end: 20040201
  3. VANCOMYCIN [Concomitant]
     Dates: start: 20040125, end: 20040127
  4. PREVISCAN [Concomitant]
  5. BACTRIM [Concomitant]
  6. LARGACTIL [Concomitant]
  7. XANAX [Concomitant]
     Route: 048
  8. STABLON [Concomitant]
     Dosage: DOSE UNIT: UNITS
  9. VALACYCLOVIR HCL [Concomitant]
  10. JOSIR [Concomitant]
     Dates: end: 20040202
  11. FUNGIZONE [Concomitant]
     Dates: end: 20040129

REACTIONS (3)
  - CYTOMEGALOVIRUS ANTIBODY POSITIVE [None]
  - SYPHILIS TEST POSITIVE [None]
  - VASCULAR PURPURA [None]
